FAERS Safety Report 17554855 (Version 2)
Quarter: 2020Q2

REPORT INFORMATION
  Report Type: Spontaneous
  Country: US (occurrence: US)
  Receive Date: 20200318
  Receipt Date: 20200629
  Transmission Date: 20200713
  Serious: No
  Sender: FDA-Public Use
  Company Number: US-PFIZER INC-2020115610

PATIENT
  Age: 72 Year
  Sex: Female
  Weight: 98.02 kg

DRUGS (1)
  1. XELJANZ XR [Suspect]
     Active Substance: TOFACITINIB CITRATE
     Dosage: 11 MG, DAILY
     Route: 048

REACTIONS (4)
  - Weight increased [Unknown]
  - Skin discolouration [Unknown]
  - Skin atrophy [Unknown]
  - Palpitations [Unknown]

NARRATIVE: CASE EVENT DATE: 2020
